FAERS Safety Report 18367072 (Version 3)
Quarter: 2020Q4

REPORT INFORMATION
  Report Type: Spontaneous
  Country: US (occurrence: US)
  Receive Date: 20201009
  Receipt Date: 20201116
  Transmission Date: 20210114
  Serious: No
  Sender: FDA-Public Use
  Company Number: US-PFIZER INC-2020389118

PATIENT
  Age: 72 Year
  Sex: Male

DRUGS (4)
  1. LYRICA [Suspect]
     Active Substance: PREGABALIN
     Indication: NECK PAIN
     Dosage: 50 MG, 2X/DAY
     Route: 048
  2. LYRICA [Suspect]
     Active Substance: PREGABALIN
     Indication: MYOFASCIAL PAIN SYNDROME
     Dosage: 50 MG, 3X/DAY
     Route: 048
  3. LYRICA [Suspect]
     Active Substance: PREGABALIN
     Indication: CERVICAL SPINAL STENOSIS
     Dosage: 50 MG, DAILY
     Route: 048
  4. LYRICA [Suspect]
     Active Substance: PREGABALIN
     Dosage: UNK [HAD HIM ON THREE BUT THEN HE RAISED HIM TO FOUR AND NOW HE^S BACK TO THREE]

REACTIONS (4)
  - Product prescribing error [Unknown]
  - Intentional product use issue [Unknown]
  - Osteoarthritis [Unknown]
  - Migraine with aura [Unknown]
